FAERS Safety Report 5161767-0 (Version None)
Quarter: 2006Q4

REPORT INFORMATION
  Report Type: 
  Country: None (occurrence: None)
  Receive Date: 20061121
  Receipt Date: 20061113
  Transmission Date: 20070319
  Serious: Yes (Disabling)
  Sender: FDA-Public Use
  Company Number: 2006123610

PATIENT
  Age: 64 Year
  Sex: Female
  Weight: 89 kg

DRUGS (7)
  1. ATORVASTATIN (ATORVASTATIN) [Suspect]
     Indication: BLOOD CHOLESTEROL
     Dosage: 10 MG (10 MG, 1 IN 1 D), ORAL
     Route: 048
     Dates: start: 20010510, end: 20041028
  2. NATRILIX (INDAPAMIDE) [Concomitant]
  3. ASPIRIN [Concomitant]
  4. TEMAZEPAM [Concomitant]
  5. DILTIAZEM HYDROCHLORIDE [Concomitant]
  6. RAMIPRIL [Concomitant]
  7. IMDUR [Concomitant]

REACTIONS (1)
  - ALOPECIA [None]
